FAERS Safety Report 8289093-1 (Version None)
Quarter: 2012Q2

REPORT INFORMATION
  Report Type: 
  Country: None (occurrence: None)
  Receive Date: 20120417
  Receipt Date: 20120413
  Transmission Date: 20120825
  Serious: Yes (Life-Threatening)
  Sender: FDA-Public Use
  Company Number: JP-B.I. PHARMACEUTICALS,INC./RIDGEFIELD-2012-BP-04295NB

PATIENT
  Age: 87 Year
  Sex: Male
  Weight: 52 kg

DRUGS (5)
  1. CALBLOCK [Concomitant]
     Indication: HYPERTENSION
     Dosage: 16 MG
     Route: 048
     Dates: end: 20120228
  2. MEMANTINE HCL [Concomitant]
     Indication: DEMENTIA
     Dosage: 10 MG
     Route: 048
     Dates: end: 20120228
  3. PRADAXA [Suspect]
     Indication: ATRIAL FIBRILLATION
     Dosage: 220 MG
     Route: 048
     Dates: start: 20120216, end: 20120228
  4. MICARDIS [Suspect]
     Indication: HYPERTENSION
     Dosage: 40 MG
     Route: 048
     Dates: end: 20120228
  5. ARICEPT [Suspect]
     Indication: DEMENTIA
     Dosage: 5 MG
     Route: 048
     Dates: end: 20120228

REACTIONS (3)
  - AGRANULOCYTOSIS [None]
  - FUNGAL INFECTION [None]
  - FEBRILE NEUTROPENIA [None]
